FAERS Safety Report 21934487 (Version 4)
Quarter: 2023Q1

REPORT INFORMATION
  Report Type: Spontaneous
  Country: CA (occurrence: CA)
  Receive Date: 20230201
  Receipt Date: 20230306
  Transmission Date: 20230418
  Serious: No
  Sender: FDA-Public Use
  Company Number: CA-PFIZER INC-202300023744

PATIENT
  Age: 55 Year
  Sex: Female
  Weight: 86 kg

DRUGS (2)
  1. ABRILADA [Suspect]
     Active Substance: ADALIMUMAB-AFZB
     Indication: Crohn^s disease
     Dosage: 160 MG, WEEK 0 160 MG, WEEK 2 80 MG, THEN 40 MG EVERY OTHER WEEK
     Route: 058
     Dates: start: 20221118
  2. MESALAMINE [Concomitant]
     Active Substance: MESALAMINE
     Dosage: UNK

REACTIONS (3)
  - Drug ineffective [Unknown]
  - Product contamination physical [Unknown]
  - Weight increased [Not Recovered/Not Resolved]
